FAERS Safety Report 12665888 (Version 1)
Quarter: 2016Q3

REPORT INFORMATION
  Report Type: Spontaneous
  Country: US (occurrence: US)
  Receive Date: 20160818
  Receipt Date: 20160818
  Transmission Date: 20161109
  Serious: No
  Sender: FDA-Public Use
  Company Number: US-ALLERGAN-1659209US

PATIENT
  Age: 44 Year
  Sex: Female

DRUGS (1)
  1. KYBELLA [Suspect]
     Active Substance: DEOXYCHOLIC ACID
     Indication: PRODUCT USED FOR UNKNOWN INDICATION
     Dosage: 1 VIAL, 2CC, SINGLE
     Route: 058
     Dates: start: 20160520, end: 20160520

REACTIONS (1)
  - Crohn^s disease [Recovering/Resolving]
